FAERS Safety Report 9269361 (Version 5)
Quarter: 2014Q2

REPORT INFORMATION
  Report Type: Report from Study
  Country: FR (occurrence: FR)
  Receive Date: 20130503
  Receipt Date: 20140424
  Transmission Date: 20141212
  Serious: Yes (Other)
  Sender: FDA-Public Use
  Company Number: PHHY2013FR042335

PATIENT
  Age: 81 Year
  Sex: Female

DRUGS (3)
  1. ACLASTA/ZOLEDRONATE [Suspect]
     Indication: OSTEOPOROSIS
     Route: 042
     Dates: start: 20120317
  2. ACLASTA/ZOLEDRONATE [Suspect]
     Route: 042
     Dates: start: 20130309
  3. DEDROGYL [Concomitant]

REACTIONS (7)
  - Fall [Unknown]
  - Face injury [Unknown]
  - Fatigue [Unknown]
  - Pulmonary mass [Not Recovered/Not Resolved]
  - Bronchitis [Unknown]
  - Influenza [Unknown]
  - Diverticulum oesophageal [Recovered/Resolved]
